FAERS Safety Report 18317593 (Version 1)
Quarter: 2020Q3

REPORT INFORMATION
  Report Type: Other
  Country: CA (occurrence: CA)
  Receive Date: 20200928
  Receipt Date: 20200928
  Transmission Date: 20201103
  Serious: Yes (Other)
  Sender: FDA-Public Use
  Company Number: CA-CELLTRION INC.-2020CA027261

PATIENT

DRUGS (16)
  1. ACETAMINOPHEN. [Concomitant]
     Active Substance: ACETAMINOPHEN
     Indication: PREMEDICATION
     Dosage: 650 MILLIGRAM
     Route: 048
  2. DILTIAZEM. [Concomitant]
     Active Substance: DILTIAZEM
  3. ATENOLOL. [Concomitant]
     Active Substance: ATENOLOL
  4. GRAVOL [Concomitant]
     Active Substance: DIMENHYDRINATE
  5. METFORMIN HYDROCHLORIDE;SITAGLIPTIN PHOSPHATE MONOHYDRATE [Concomitant]
     Active Substance: METFORMIN HYDROCHLORIDE\SITAGLIPTIN PHOSPHATE
  6. RAMIPRIL. [Concomitant]
     Active Substance: RAMIPRIL
  7. IBUPROFEN. [Concomitant]
     Active Substance: IBUPROFEN
  8. VICTOZA [Concomitant]
     Active Substance: LIRAGLUTIDE
  9. GLICLAZIDE [Concomitant]
     Active Substance: GLICLAZIDE
  10. PREDNISONE. [Concomitant]
     Active Substance: PREDNISONE
  11. TECTA [Concomitant]
     Active Substance: PANTOPRAZOLE MAGNESIUM
  12. DIPHENHYDRAMINE. [Concomitant]
     Active Substance: DIPHENHYDRAMINE
     Indication: PREMEDICATION
     Dosage: 50 MILLIGRAM
     Route: 048
  13. METHYLPREDNISOLONE. [Concomitant]
     Active Substance: METHYLPREDNISOLONE
     Indication: PREMEDICATION
     Dosage: 100 MILLIGRAM
     Route: 042
  14. RITUXIMAB (UNKNOWN) [Suspect]
     Active Substance: RITUXIMAB
     Indication: RHEUMATOID ARTHRITIS
     Dosage: 1000 MILLIGRAM
     Route: 042
  15. PERCOCET [Concomitant]
     Active Substance: ACETAMINOPHEN\OXYCODONE HYDROCHLORIDE
  16. LYRICA [Concomitant]
     Active Substance: PREGABALIN

REACTIONS (2)
  - Nephrolithiasis [Unknown]
  - Blood glucose increased [Unknown]
